FAERS Safety Report 8369148-3 (Version None)
Quarter: 2012Q2

REPORT INFORMATION
  Report Type: 
  Country: None (occurrence: None)
  Receive Date: 20120518
  Receipt Date: 20120507
  Transmission Date: 20120825
  Serious: Yes (Death, Other)
  Sender: FDA-Public Use
  Company Number: FR-GENZYME-CLOF-1002140

PATIENT

DRUGS (8)
  1. ETOPOSIDE [Concomitant]
     Indication: ACUTE LYMPHOCYTIC LEUKAEMIA RECURRENT
     Dosage: 150 MG/M2, QD
     Route: 065
     Dates: start: 20090630
  2. DEPO-MEDROL [Concomitant]
     Indication: PRODUCT USED FOR UNKNOWN INDICATION
     Dosage: 40 MG, QD
     Route: 037
     Dates: start: 20090704
  3. METHOTREXATE [Concomitant]
     Indication: PRODUCT USED FOR UNKNOWN INDICATION
     Dosage: 15 MG, QD
     Route: 037
     Dates: start: 20090704
  4. MITOXANTRONE [Concomitant]
     Indication: ACUTE LYMPHOCYTIC LEUKAEMIA RECURRENT
     Dosage: 8 MG/M2, QD
     Route: 065
     Dates: start: 20090630
  5. ELSPAR [Concomitant]
     Indication: ACUTE LYMPHOCYTIC LEUKAEMIA RECURRENT
     Dosage: 2500 IU/M2, QD
     Route: 065
     Dates: start: 20090630
  6. CYTARABINE [Concomitant]
     Indication: PRODUCT USED FOR UNKNOWN INDICATION
     Dosage: 40 MG, QD
     Route: 037
     Dates: start: 20090704
  7. DEXAMETHASONE [Concomitant]
     Indication: ACUTE LYMPHOCYTIC LEUKAEMIA RECURRENT
     Dosage: 20 MG/M2, QD
     Route: 065
     Dates: start: 20090630
  8. CLOFARABINE [Suspect]
     Indication: ACUTE LYMPHOCYTIC LEUKAEMIA RECURRENT
     Dosage: 30 MG/M2, QD
     Route: 065
     Dates: start: 20090630

REACTIONS (5)
  - CLOSTRIDIUM DIFFICILE COLITIS [None]
  - BRONCHOPULMONARY ASPERGILLOSIS [None]
  - TACHYCARDIA [None]
  - SEPSIS [None]
  - CHOLECYSTITIS ACUTE [None]
